FAERS Safety Report 23083373 (Version 1)
Quarter: 2023Q4

REPORT INFORMATION
  Report Type: Spontaneous
  Country: IQ (occurrence: IQ)
  Receive Date: 20231019
  Receipt Date: 20231019
  Transmission Date: 20240109
  Serious: Yes (Death, Other)
  Sender: FDA-Public Use
  Company Number: IQ-SA-SAC20231019000363

PATIENT
  Age: 2 Month
  Sex: Male
  Weight: 5 kg

DRUGS (2)
  1. MYOZYME [Suspect]
     Active Substance: ALGLUCOSIDASE ALFA
     Indication: Glycogen storage disease type II
     Dosage: 20 MG/KG, QOW
     Route: 042
  2. ALLERMIN [CHLORPHENAMINE MALEATE] [Concomitant]
     Indication: Prophylaxis
     Dosage: UNK
     Route: 042

REACTIONS (1)
  - Respiratory failure [Fatal]

NARRATIVE: CASE EVENT DATE: 20231015
